FAERS Safety Report 7968624-2 (Version None)
Quarter: 2011Q4

REPORT INFORMATION
  Report Type: 
  Country: None (occurrence: None)
  Receive Date: 20111209
  Receipt Date: 20111130
  Transmission Date: 20120403
  Serious: Yes (Death, Hospitalization)
  Sender: FDA-Public Use
  Company Number: US-GLAXOSMITHKLINE-A0877703A

PATIENT
  Sex: Female
  Weight: 138.6 kg

DRUGS (2)
  1. AVANDAMET [Suspect]
     Indication: DIABETES MELLITUS
     Route: 048
  2. AVANDIA [Suspect]
     Indication: DIABETES MELLITUS
     Dosage: 4MG TWICE PER DAY
     Route: 048
     Dates: end: 20081201

REACTIONS (5)
  - CARDIAC FAILURE CONGESTIVE [None]
  - RENAL FAILURE [None]
  - DYSPNOEA [None]
  - MYOCARDIAL INFARCTION [None]
  - ABASIA [None]
